FAERS Safety Report 14619158 (Version 2)
Quarter: 2018Q1

REPORT INFORMATION
  Report Type: Spontaneous
  Country: DE (occurrence: DE)
  Receive Date: 20180309
  Receipt Date: 20180313
  Transmission Date: 20180509
  Serious: Yes (Other)
  Sender: FDA-Public Use
  Company Number: DE-AUROBINDO-AUR-APL-2018-012596

PATIENT
  Age: 44 Year
  Sex: Female

DRUGS (3)
  1. ATAZANAVIR. [Suspect]
     Active Substance: ATAZANAVIR SULFATE
     Indication: PRODUCT USED FOR UNKNOWN INDICATION
     Dosage: UNK
     Route: 065
  2. COTRIMOXAZOLE [Suspect]
     Active Substance: SULFAMETHOXAZOLE\TRIMETHOPRIM
     Indication: PRODUCT USED FOR UNKNOWN INDICATION
     Dosage: UNK
     Route: 065
  3. ABACAVIR+LAMIVUDINE [Suspect]
     Active Substance: ABACAVIR SULFATE\LAMIVUDINE
     Indication: PRODUCT USED FOR UNKNOWN INDICATION
     Dosage: UNK
     Route: 065

REACTIONS (24)
  - Respiratory failure [Unknown]
  - Hyperkalaemia [Unknown]
  - Dyspnoea [Unknown]
  - Hypotension [Unknown]
  - Hyponatraemia [Unknown]
  - Pulmonary oedema [Unknown]
  - Anaemia [Unknown]
  - Oliguria [Unknown]
  - Fatigue [Unknown]
  - Rash [Unknown]
  - Abdominal pain [Unknown]
  - Haematuria [Unknown]
  - Azotaemia [Unknown]
  - Anuria [Unknown]
  - Dysuria [Unknown]
  - Renal injury [Unknown]
  - Metabolic acidosis [Unknown]
  - Renal failure [Unknown]
  - Oedema peripheral [Unknown]
  - Dehydration [Unknown]
  - Flank pain [Unknown]
  - Nausea [Unknown]
  - Pneumonia [Unknown]
  - Cardiac failure [Unknown]
